FAERS Safety Report 20837965 (Version 1)
Quarter: 2022Q2

REPORT INFORMATION
  Report Type: Spontaneous
  Country: US (occurrence: US)
  Receive Date: 20220517
  Receipt Date: 20220517
  Transmission Date: 20220721
  Serious: No
  Sender: FDA-Public Use
  Company Number: US-HORIZON THERAPEUTICS-HZN-2022-001276

PATIENT
  Sex: Female

DRUGS (2)
  1. TEPEZZA [Suspect]
     Active Substance: TEPROTUMUMAB-TRBW
     Indication: Product used for unknown indication
     Dosage: FIRST DOSE
     Route: 042
     Dates: start: 20220214
  2. ELIQUIS [Concomitant]
     Active Substance: APIXABAN
     Route: 065

REACTIONS (2)
  - Diplopia [Not Recovered/Not Resolved]
  - Ciliary muscle spasm [Not Recovered/Not Resolved]
